FAERS Safety Report 9203880 (Version 3)
Quarter: 2013Q2

REPORT INFORMATION
  Report Type: Report from Study
  Country: SE (occurrence: SE)
  Receive Date: 20130402
  Receipt Date: 20130612
  Transmission Date: 20140414
  Serious: Yes (Other)
  Sender: FDA-Public Use
  Company Number: SE-AMGEN-SWESP2013022781

PATIENT
  Age: 39 Year
  Sex: Female

DRUGS (6)
  1. ETANERCEPT [Suspect]
     Indication: PSORIASIS
     Dosage: 50 MG, QWK
     Route: 058
     Dates: start: 20040322, end: 20130201
  2. OMEPRAZOL                          /00661201/ [Concomitant]
     Dosage: UNK
  3. ZOPICLONE [Concomitant]
     Dosage: UNK
  4. PANODIL [Concomitant]
     Dosage: UNK
  5. TIPAROL [Concomitant]
     Dosage: UNK
  6. TREO [Concomitant]
     Dosage: UNK

REACTIONS (2)
  - Dizziness [Unknown]
  - Convulsion [Unknown]
